FAERS Safety Report 16340630 (Version 1)
Quarter: 2019Q2

REPORT INFORMATION
  Report Type: Spontaneous
  Country: FI (occurrence: FI)
  Receive Date: 20190522
  Receipt Date: 20190522
  Transmission Date: 20190711
  Serious: Yes (Hospitalization)
  Sender: FDA-Public Use
  Company Number: FI-SUN PHARMACEUTICAL INDUSTRIES LTD-2019RR-208262

PATIENT
  Sex: Male

DRUGS (9)
  1. AMLODIPIN SANDOZ [Concomitant]
     Indication: PRODUCT USED FOR UNKNOWN INDICATION
     Dosage: 1 DOSAGE FORM, BID
     Route: 065
  2. PRATSIOL [Suspect]
     Active Substance: PRAZOSIN HYDROCHLORIDE
     Indication: HYPERTENSION
     Dosage: 1 DOSAGE FORM, BID (1 DOSAGE FORM,1 IN 12 HR)
     Route: 048
  3. HYDREX (HYDROCHLOROTHIAZIDE) [Suspect]
     Active Substance: HYDROCHLOROTHIAZIDE
     Dosage: 0.5 DOSAGE FORM, DAILY, 25 MG (0.5 DOSAGE FORM,1 D)
     Route: 048
     Dates: start: 2018
  4. PRATSIOL [Suspect]
     Active Substance: PRAZOSIN HYDROCHLORIDE
     Dosage: 0.5 DOSAGE FORM, BID, 1 MG (0.5 DOSAGE FORM,1 IN 12 HR)
     Route: 048
     Dates: start: 2017
  5. HYDREX (HYDROCHLOROTHIAZIDE) [Suspect]
     Active Substance: HYDROCHLOROTHIAZIDE
     Indication: POLYURIA
     Dosage: 1 DOSAGE FORM, DAILY, 25 MG (1 DOSAGE FORM,1 D)
     Route: 048
     Dates: start: 2018
  6. CARDACE [Concomitant]
     Active Substance: RAMIPRIL
     Indication: PRODUCT USED FOR UNKNOWN INDICATION
     Dosage: 1 DOSAGE FORM, DAILY
     Route: 065
  7. ATORVASTATIN ORION [Suspect]
     Active Substance: ATORVASTATIN CALCIUM
     Indication: PRODUCT USED FOR UNKNOWN INDICATION
     Dosage: 20 MILLIGRAM, DAILY, IN EVENING (1 DECIGRAM,1 D)
     Route: 048
     Dates: start: 2018
  8. PRIMASPAN [Suspect]
     Active Substance: ASPIRIN
     Indication: PRODUCT USED FOR UNKNOWN INDICATION
     Dosage: 100 MILLIGRAM, DAILY, IN MORNING (1 DOSAGE FORM,1 D)
     Route: 048
     Dates: start: 2018, end: 2018
  9. BISOPROLOL ACTAVIS [Concomitant]
     Active Substance: BISOPROLOL
     Indication: PRODUCT USED FOR UNKNOWN INDICATION
     Dosage: 1 DOSAGE FORM, BID
     Route: 065

REACTIONS (16)
  - Therapy cessation [Unknown]
  - Haematochezia [Recovered/Resolved]
  - Hepatic pain [Unknown]
  - Cerebral infarction [Recovered/Resolved]
  - Pain in extremity [Unknown]
  - Dizziness [Recovered/Resolved]
  - Facial paralysis [Recovered/Resolved]
  - Intentional product misuse [Unknown]
  - Peripheral vascular disorder [Unknown]
  - Asthenia [Unknown]
  - Arthralgia [Unknown]
  - Abdominal pain upper [Recovered/Resolved]
  - Dyspepsia [Unknown]
  - Speech disorder [Recovered/Resolved]
  - Contraindicated product administered [Unknown]
  - Coronary artery occlusion [Recovered/Resolved]

NARRATIVE: CASE EVENT DATE: 2017
